FAERS Safety Report 4319647-6 (Version None)
Quarter: 2004Q1

REPORT INFORMATION
  Report Type: 
  Country: None (occurrence: None)
  Receive Date: 20040319
  Receipt Date: 20040223
  Transmission Date: 20041129
  Serious: Yes (Hospitalization)
  Sender: FDA-Public Use
  Company Number: WAES 0402USA01748

PATIENT
  Age: 47 Year
  Sex: Female
  Weight: 48 kg

DRUGS (1)
  1. STROMECTOL [Suspect]
     Route: 048
     Dates: start: 20031211, end: 20031211

REACTIONS (13)
  - ASTHENIA [None]
  - COMA [None]
  - DECUBITUS ULCER [None]
  - DEHYDRATION [None]
  - DEPRESSED LEVEL OF CONSCIOUSNESS [None]
  - ENCEPHALOPATHY [None]
  - HEADACHE [None]
  - HYPOGLYCAEMIA [None]
  - NUCHAL RIGIDITY [None]
  - PYREXIA [None]
  - SKIN TURGOR DECREASED [None]
  - URINARY TRACT INFECTION [None]
  - VOMITING [None]
